FAERS Safety Report 13749508 (Version 1)
Quarter: 2017Q3

REPORT INFORMATION
  Report Type: Spontaneous
  Country: US (occurrence: US)
  Receive Date: 20170713
  Receipt Date: 20170713
  Transmission Date: 20171127
  Serious: Yes (Other)
  Sender: FDA-Public Use
  Company Number: None

PATIENT
  Age: 62 Year
  Sex: Female

DRUGS (1)
  1. ENBREL [Suspect]
     Active Substance: ETANERCEPT
     Indication: RHEUMATOID ARTHRITIS
     Dosage: DOSE - 50MG/ML?ROUTE - INJECT ONE SURECLICK PEN
     Dates: start: 20170523, end: 20170705

REACTIONS (1)
  - Rash [None]

NARRATIVE: CASE EVENT DATE: 20170705
